FAERS Safety Report 5413430-6 (Version None)
Quarter: 2007Q3

REPORT INFORMATION
  Report Type: 
  Country: None (occurrence: None)
  Receive Date: 20070810
  Receipt Date: 20070810
  Transmission Date: 20080115
  Serious: Yes (Life-Threatening, Hospitalization, Other)
  Sender: FDA-Public Use
  Company Number: None

PATIENT
  Age: 22 Year
  Sex: Male

DRUGS (2)
  1. CORICIDIN [Suspect]
     Indication: EUPHORIC MOOD
     Dosage: DF;ONCE;PO
     Route: 048
     Dates: start: 20070701
  2. CORICIDIN [Suspect]
     Indication: SUBSTANCE ABUSE
     Dosage: DF;ONCE;PO
     Route: 048
     Dates: start: 20070701

REACTIONS (10)
  - BRAIN DAMAGE [None]
  - BREATH SOUNDS ABNORMAL [None]
  - DISORIENTATION [None]
  - DRUG ABUSER [None]
  - DRUG DEPENDENCE [None]
  - INTENTIONAL DRUG MISUSE [None]
  - OVERDOSE [None]
  - PALPITATIONS [None]
  - RESPIRATORY FAILURE [None]
  - VASODILATATION [None]
